FAERS Safety Report 11645787 (Version 1)
Quarter: 2015Q4

REPORT INFORMATION
  Report Type: Report from Study
  Country: US (occurrence: US)
  Receive Date: 20151020
  Receipt Date: 20151020
  Transmission Date: 20160304
  Serious: No
  Sender: FDA-Public Use
  Company Number: US-AMGEN-USASL2015088308

PATIENT
  Sex: Male

DRUGS (1)
  1. CORLANOR [Suspect]
     Active Substance: IVABRADINE HYDROCHLORIDE
     Indication: CARDIAC FAILURE
     Dosage: 5 MG, BID
     Route: 065
     Dates: start: 2015

REACTIONS (3)
  - Hypertension [Unknown]
  - Photopsia [Unknown]
  - Bradycardia [Unknown]

NARRATIVE: CASE EVENT DATE: 2015
